FAERS Safety Report 16089861 (Version 7)
Quarter: 2020Q1

REPORT INFORMATION
  Report Type: Spontaneous
  Country: DE (occurrence: DE)
  Receive Date: 20190319
  Receipt Date: 20200203
  Transmission Date: 20200409
  Serious: Yes (Death, Life-Threatening, Hospitalization, Other)
  Sender: FDA-Public Use
  Company Number: DE-MYLANLABS-2019M1024008

PATIENT
  Age: 79 Year
  Sex: Male
  Weight: 74 kg

DRUGS (17)
  1. ACETYLSALICYLIC ACID [Suspect]
     Active Substance: ASPIRIN
     Indication: PRODUCT USED FOR UNKNOWN INDICATION
     Dosage: 100 MILLIGRAM, QD (100 MG, QD)
     Route: 065
  2. SPIRONOLACTONE. [Concomitant]
     Active Substance: SPIRONOLACTONE
     Indication: PRODUCT USED FOR UNKNOWN INDICATION
     Dosage: 25 MILLIGRAM, QD
     Route: 065
  3. ELIQUIS [Suspect]
     Active Substance: APIXABAN
     Dosage: 2.5 MILLIGRAM, BID (5 MG,QD)
     Route: 065
     Dates: start: 20170523, end: 20170524
  4. MAGNESIUM [Concomitant]
     Active Substance: MAGNESIUM
     Dosage: 1 DOSAGE FORM, QD,  (1 DF, QD)
  5. MERONEM [Concomitant]
     Active Substance: MEROPENEM
     Indication: PRODUCT USED FOR UNKNOWN INDICATION
     Dosage: 1 GRAM, TID (3 G, Q8H)
     Route: 042
  6. BISOPROLOL [Concomitant]
     Active Substance: BISOPROLOL
     Indication: PRODUCT USED FOR UNKNOWN INDICATION
     Dosage: 5 MILLIGRAM, QD
     Route: 065
  7. ELIQUIS [Suspect]
     Active Substance: APIXABAN
     Indication: PULMONARY EMBOLISM
     Dosage: 10 MILLIGRAM, BID (20 MILLIGRAM, QD)
     Route: 065
     Dates: start: 20170519, end: 20170522
  8. ELIQUIS [Suspect]
     Active Substance: APIXABAN
     Dosage: 5 MG, Q12H (2.5 MG, BID)
     Route: 065
     Dates: start: 20170523
  9. TOUJEO [Concomitant]
     Active Substance: INSULIN GLARGINE
     Indication: PRODUCT USED FOR UNKNOWN INDICATION
     Dosage: 8 IU, QD
     Route: 065
  10. MAGNESIUM [Concomitant]
     Active Substance: MAGNESIUM
     Indication: PRODUCT USED FOR UNKNOWN INDICATION
     Dosage: 1 DOSAGE FORM, TID,3 DF, Q8H
     Route: 065
  11. PANTOZOL [Concomitant]
     Active Substance: PANTOPRAZOLE SODIUM
     Indication: PRODUCT USED FOR UNKNOWN INDICATION
     Dosage: 40 MILLIGRAM, BID,80 MILLIGRAM, QD
     Route: 048
  12. CLARITHROMYCIN. [Suspect]
     Active Substance: CLARITHROMYCIN
     Indication: PRODUCT USED FOR UNKNOWN INDICATION
     Dosage: 500 MILLIGRAM,BID(1000 MILLIGRAM,QD)
     Route: 048
  13. JANUVIA [Concomitant]
     Active Substance: SITAGLIPTIN PHOSPHATE
     Indication: PRODUCT USED FOR UNKNOWN INDICATION
     Dosage: 50 MG, QD
     Route: 065
  14. UROKINASE [Concomitant]
     Active Substance: UROKINASE
     Indication: PRODUCT USED FOR UNKNOWN INDICATION
     Dosage: UNK
     Route: 065
  15. CANDIO HERMAL [Concomitant]
     Indication: PRODUCT USED FOR UNKNOWN INDICATION
     Dosage: 1 DOSAGE FORM, QID,4 DOSAGE FORM, Q6H
     Route: 065
  16. HYDROCHLOROTHIAZIDE. [Concomitant]
     Active Substance: HYDROCHLOROTHIAZIDE
     Indication: PRODUCT USED FOR UNKNOWN INDICATION
     Dosage: 25 MILLIGRAM, QD
     Route: 065
  17. KALINOR                            /00279301/ [Concomitant]
     Active Substance: CITRIC ACID MONOHYDRATE\POTASSIUM BICARBONATE\POTASSIUM CITRATE
     Indication: PRODUCT USED FOR UNKNOWN INDICATION
     Dosage: 1 DOSAGE FORM, QD
     Route: 065

REACTIONS (13)
  - Haematoma [Unknown]
  - Urinary bladder haemorrhage [Unknown]
  - Bladder irrigation [Unknown]
  - Intentional product use issue [Unknown]
  - Death [Fatal]
  - Mouth haemorrhage [Unknown]
  - Ventricular fibrillation [Unknown]
  - Haematuria [Unknown]
  - Off label use [Unknown]
  - Haemothorax [Unknown]
  - Hypotension [Unknown]
  - Thrombosis [Unknown]
  - Packed red blood cell transfusion [Unknown]

NARRATIVE: CASE EVENT DATE: 20170522
